FAERS Safety Report 7421607-3 (Version None)
Quarter: 2011Q2

REPORT INFORMATION
  Report Type: 
  Country: None (occurrence: None)
  Receive Date: 20110418
  Receipt Date: 20110407
  Transmission Date: 20111010
  Serious: Yes (Other)
  Sender: FDA-Public Use
  Company Number: US-ASTRAZENECA-2011SE19695

PATIENT
  Age: 62 Year
  Sex: Female
  Weight: 77.1 kg

DRUGS (4)
  1. ZOLOFT [Concomitant]
  2. ARIMIDEX [Suspect]
     Dosage: GENERIC ANASTROZOLE.
     Route: 048
     Dates: start: 20110401
  3. ARIMIDEX [Suspect]
     Indication: BREAST CANCER
     Route: 048
     Dates: start: 20080601, end: 20110401
  4. LISINOPRIL [Concomitant]

REACTIONS (7)
  - PULMONARY EMBOLISM [None]
  - FALL [None]
  - BONE DENSITY DECREASED [None]
  - ARTHRALGIA [None]
  - ANAEMIA [None]
  - OSTEOPENIA [None]
  - LOWER LIMB FRACTURE [None]
